FAERS Safety Report 7922157-8 (Version None)
Quarter: 2011Q4

REPORT INFORMATION
  Report Type: 
  Country: None (occurrence: None)
  Receive Date: 20111117
  Receipt Date: 20110124
  Transmission Date: 20120403
  Serious: No
  Sender: FDA-Public Use
  Company Number: US-AMGEN-USASP2010004989

PATIENT
  Age: 65 Year
  Sex: Female

DRUGS (2)
  1. ENBREL [Suspect]
     Indication: RHEUMATOID ARTHRITIS
     Dosage: 50 MG, QWK
     Dates: start: 20101019
  2. ENBREL [Suspect]
     Dosage: 50 MG, QWK
     Dates: start: 20101027

REACTIONS (13)
  - TREMOR [None]
  - PAIN [None]
  - VULVOVAGINAL PAIN [None]
  - DRUG INEFFECTIVE [None]
  - INJECTION SITE ERYTHEMA [None]
  - INSOMNIA [None]
  - PERINEAL PAIN [None]
  - SPUTUM DISCOLOURED [None]
  - DYSKINESIA [None]
  - GAIT DISTURBANCE [None]
  - INJECTION SITE PAIN [None]
  - RHEUMATOID ARTHRITIS [None]
  - COUGH [None]
